FAERS Safety Report 22636636 (Version 8)
Quarter: 2023Q4

REPORT INFORMATION
  Report Type: Report from Study
  Country: CH (occurrence: CH)
  Receive Date: 20230623
  Receipt Date: 20231108
  Transmission Date: 20240110
  Serious: Yes (Life-Threatening, Hospitalization, Other)
  Sender: FDA-Public Use
  Company Number: CH-GILEAD-2023-0633392

PATIENT
  Age: 64 Year
  Sex: Male
  Weight: 77 kg

DRUGS (110)
  1. BREXUCABTAGENE AUTOLEUCEL [Suspect]
     Active Substance: BREXUCABTAGENE AUTOLEUCEL
     Indication: Richter^s syndrome
     Dosage: UNK
     Route: 042
     Dates: start: 20230613, end: 20230613
  2. BREXUCABTAGENE AUTOLEUCEL [Suspect]
     Active Substance: BREXUCABTAGENE AUTOLEUCEL
     Indication: Chronic lymphocytic leukaemia
  3. CYCLOPHOSPHAMIDE [Suspect]
     Active Substance: CYCLOPHOSPHAMIDE
     Indication: Richter^s syndrome
     Dosage: 945
     Route: 065
     Dates: start: 20230608, end: 20230610
  4. CYCLOPHOSPHAMIDE [Suspect]
     Active Substance: CYCLOPHOSPHAMIDE
     Indication: Chronic lymphocytic leukaemia
  5. FLUDARABINE [Suspect]
     Active Substance: FLUDARABINE PHOSPHATE
     Indication: Richter^s syndrome
     Dosage: 40
     Route: 065
     Dates: start: 20230608, end: 20230610
  6. FLUDARABINE [Suspect]
     Active Substance: FLUDARABINE PHOSPHATE
     Indication: Chronic lymphocytic leukaemia
  7. CYCLOPHOSPHAMIDE\DOXORUBICIN\PREDNISONE\RITUXIMAB\VINCRISTINE [Suspect]
     Active Substance: CYCLOPHOSPHAMIDE\DOXORUBICIN\PREDNISONE\RITUXIMAB\VINCRISTINE
     Indication: Product used for unknown indication
     Dosage: 1430
     Route: 042
     Dates: start: 20230512, end: 20230512
  8. CYCLOPHOSPHAMIDE\DOXORUBICIN\PREDNISONE\RITUXIMAB\VINCRISTINE [Suspect]
     Active Substance: CYCLOPHOSPHAMIDE\DOXORUBICIN\PREDNISONE\RITUXIMAB\VINCRISTINE
     Dosage: 100
     Route: 048
     Dates: start: 20230512, end: 20230516
  9. LANTUS [Concomitant]
     Active Substance: INSULIN GLARGINE
     Dosage: 100,IU,DAILY
     Route: 058
     Dates: start: 201901
  10. VALACYCLOVIR HYDROCHLORIDE [Concomitant]
     Active Substance: VALACYCLOVIR HYDROCHLORIDE
     Dosage: 500,MG,DAILY
     Route: 048
     Dates: start: 20220104
  11. VALACYCLOVIR HYDROCHLORIDE [Concomitant]
     Active Substance: VALACYCLOVIR HYDROCHLORIDE
     Dosage: 500,MG,TWICE DAILY
     Route: 048
     Dates: start: 20220104, end: 20230621
  12. BACTRIM [Concomitant]
     Active Substance: SULFAMETHOXAZOLE\TRIMETHOPRIM
     Dosage: 800/160,MG,OTHER
     Route: 048
     Dates: start: 20220105
  13. BACTRIM [Concomitant]
     Active Substance: SULFAMETHOXAZOLE\TRIMETHOPRIM
     Dosage: 800/160,MG,OTHER
     Route: 048
     Dates: start: 20220105, end: 20230721
  14. DAFALGAN [Concomitant]
     Active Substance: ACETAMINOPHEN
     Dosage: 1,G,AS NECESSARY
     Route: 048
     Dates: start: 20230427
  15. NOVALGIN (METAMIZOLE SODIUM) [Concomitant]
     Active Substance: METAMIZOLE SODIUM
     Dosage: 500,MG,AS NECESSARY
     Route: 048
     Dates: start: 20230427
  16. PANTOZOL [Concomitant]
     Active Substance: PANTOPRAZOLE SODIUM
     Dosage: 40,MG,DAILY
     Route: 048
     Dates: start: 20230427, end: 20230621
  17. PANTOZOL [Concomitant]
     Active Substance: PANTOPRAZOLE SODIUM
     Dosage: UNK
     Dates: start: 20230622, end: 20230629
  18. MINERAL OIL [Concomitant]
     Active Substance: MINERAL OIL
     Dosage: 500,ML,AS NECESSARY
     Route: 048
     Dates: start: 20230427
  19. METOCLOPRAMIDE HYDROCHLORIDE [Concomitant]
     Active Substance: METOCLOPRAMIDE HYDROCHLORIDE
     Dosage: 10,MG,AS NECESSARY
     Route: 048
     Dates: start: 20230427
  20. VALVERDE [VALERIANA OFFICINALIS EXTRACT] [Concomitant]
     Dosage: 200,ML,AS NECESSARY
     Route: 048
     Dates: start: 20230427
  21. ALLOPURINOL [Concomitant]
     Active Substance: ALLOPURINOL
     Dosage: 300,MG,DAILY
     Route: 048
     Dates: start: 20230427
  22. ALLOPURINOL [Concomitant]
     Active Substance: ALLOPURINOL
     Dosage: 300,MG,DAILY
     Route: 048
     Dates: start: 20230427, end: 20230620
  23. MYCOSTATIN [Concomitant]
     Active Substance: NYSTATIN
     Dosage: 1,ML,THREE TIMES DAILY
     Route: 048
     Dates: start: 20230508
  24. MYCOSTATIN [Concomitant]
     Active Substance: NYSTATIN
     Dosage: 1,ML,THREE TIMES DAILY
     Route: 048
     Dates: start: 20230508, end: 20230622
  25. PRAMIPEXOLE [Concomitant]
     Active Substance: PRAMIPEXOLE
     Dosage: 0.125,MG,DAILY
     Route: 048
  26. PAMIDRONATE DISODIUM [Concomitant]
     Active Substance: PAMIDRONATE DISODIUM
     Dosage: 30,MG,ONCE
     Route: 042
     Dates: start: 20230531, end: 20230531
  27. PRIVIGEN [Concomitant]
     Active Substance: HUMAN IMMUNOGLOBULIN G
     Dosage: 0.4,OTHER,AS NECESSARY
     Route: 042
     Dates: start: 20230604
  28. PRIVIGEN [Concomitant]
     Active Substance: HUMAN IMMUNOGLOBULIN G
     Dosage: 0.4,OTHER,AS NECESSARY
     Route: 042
     Dates: start: 20230606
  29. PRIVIGEN [Concomitant]
     Active Substance: HUMAN IMMUNOGLOBULIN G
     Dosage: 0.4,OTHER,AS NECESSARY
     Route: 042
     Dates: start: 20230606, end: 20230821
  30. ROCEPHIN [Concomitant]
     Active Substance: CEFTRIAXONE SODIUM
     Dosage: 2,G,DAILY
     Route: 030
     Dates: start: 20230605, end: 20230610
  31. ROCEPHIN [Concomitant]
     Active Substance: CEFTRIAXONE SODIUM
     Dosage: 2,G,DAILY
     Route: 030
     Dates: start: 20230605, end: 20230609
  32. TAZOBACTAM [Concomitant]
     Active Substance: TAZOBACTAM
     Dosage: 4.5,G,THREE TIMES DAILY
     Route: 042
     Dates: start: 20230610, end: 20230611
  33. TAZOBACTAM [Concomitant]
     Active Substance: TAZOBACTAM
     Dosage: 4.5,G,THREE TIMES DAILY
     Route: 042
     Dates: start: 20230604, end: 20230604
  34. TAZOBACTAM [Concomitant]
     Active Substance: TAZOBACTAM
     Dosage: 4.5,G,THREE TIMES DAILY
     Route: 042
     Dates: start: 20230611, end: 20230612
  35. CEFEPIME [Concomitant]
     Active Substance: CEFEPIME HYDROCHLORIDE
     Dosage: 2,G,TWICE DAILY
     Route: 042
     Dates: start: 20230612, end: 20230613
  36. MEROPENEM [Concomitant]
     Active Substance: MEROPENEM
     Dosage: 2,G,THREE TIMES DAILY
     Route: 042
     Dates: start: 20230613, end: 20230624
  37. MEROPENEM [Concomitant]
     Active Substance: MEROPENEM
     Dosage: 2,G,THREE TIMES DAILY
     Route: 042
     Dates: start: 20230613, end: 20230725
  38. MEROPENEM [Concomitant]
     Active Substance: MEROPENEM
     Dosage: 2,G,THREE TIMES DAILY
     Route: 042
     Dates: start: 20230613, end: 20230719
  39. MEROPENEM [Concomitant]
     Active Substance: MEROPENEM
     Dosage: 1,G,TWICE DAILY
     Route: 042
     Dates: start: 20230620, end: 20230629
  40. LASIX [Concomitant]
     Active Substance: FUROSEMIDE
     Dosage: 20,MG,DAILY
     Route: 042
     Dates: start: 20230609, end: 20230612
  41. FASTURTEC [Concomitant]
     Active Substance: RASBURICASE
     Dosage: 7.5,MG,AS NECESSARY
     Route: 042
     Dates: start: 20230613
  42. FASTURTEC [Concomitant]
     Active Substance: RASBURICASE
     Dosage: 7.5,MG,ONCE
     Route: 042
     Dates: start: 20230619, end: 20230619
  43. TOCILIZUMAB [Concomitant]
     Active Substance: TOCILIZUMAB
     Dosage: 640,MG,THREE TIMES DAILY
     Route: 042
     Dates: start: 20230613, end: 20230614
  44. TOCILIZUMAB [Concomitant]
     Active Substance: TOCILIZUMAB
     Dosage: 640,MG,DAILY
     Route: 042
     Dates: start: 20230618, end: 20230618
  45. PLATELETS [Concomitant]
     Active Substance: HUMAN PLATELET, ALLOGENIC
     Dosage: 2,OTHER,ONCE
     Route: 042
     Dates: start: 20230618, end: 20230618
  46. PLATELETS [Concomitant]
     Active Substance: HUMAN PLATELET, ALLOGENIC
     Dosage: 2,OTHER,ONCE
     Route: 042
     Dates: start: 20230620, end: 20230620
  47. PLATELETS [Concomitant]
     Active Substance: HUMAN PLATELET, ALLOGENIC
     Dosage: 1,OTHER,ONCE
     Route: 042
     Dates: start: 20230621, end: 20230621
  48. PLATELETS [Concomitant]
     Active Substance: HUMAN PLATELET, ALLOGENIC
     Dosage: 1,OTHER,ONCE
     Route: 042
     Dates: start: 20230622, end: 20230622
  49. PLATELETS [Concomitant]
     Active Substance: HUMAN PLATELET, ALLOGENIC
     Dosage: 3,OTHER,ONCE
     Route: 042
     Dates: start: 20230623, end: 20230623
  50. PLATELETS [Concomitant]
     Active Substance: HUMAN PLATELET, ALLOGENIC
     Dosage: 2,OTHER,ONCE
     Route: 042
     Dates: start: 20230624, end: 20230624
  51. PLATELETS [Concomitant]
     Active Substance: HUMAN PLATELET, ALLOGENIC
     Dosage: 1,OTHER,ONCE
     Route: 042
     Dates: start: 20230626, end: 20230626
  52. PLATELETS [Concomitant]
     Active Substance: HUMAN PLATELET, ALLOGENIC
     Dosage: 1,OTHER,ONCE
     Route: 042
     Dates: start: 20230627, end: 20230627
  53. PLATELETS [Concomitant]
     Active Substance: HUMAN PLATELET, ALLOGENIC
     Dosage: 2,OTHER,ONCE
     Route: 042
     Dates: start: 20230628, end: 20230628
  54. PLATELETS [Concomitant]
     Active Substance: HUMAN PLATELET, ALLOGENIC
     Dosage: 1,OTHER,ONCE
     Route: 042
     Dates: start: 20230702, end: 20230702
  55. PLATELETS [Concomitant]
     Active Substance: HUMAN PLATELET, ALLOGENIC
     Dosage: 1,OTHER,ONCE
     Route: 042
     Dates: start: 20230703, end: 20230703
  56. PLATELETS [Concomitant]
     Active Substance: HUMAN PLATELET, ALLOGENIC
     Dosage: 1,OTHER,ONCE
     Route: 042
     Dates: start: 20230714, end: 20230714
  57. PLATELETS [Concomitant]
     Active Substance: HUMAN PLATELET, ALLOGENIC
     Dosage: 1,OTHER,ONCE
     Route: 042
     Dates: start: 20230715, end: 20230715
  58. HUMAN RED BLOOD CELL [Concomitant]
     Active Substance: HUMAN RED BLOOD CELL
     Dosage: 1,OTHER,ONCE
     Route: 042
     Dates: start: 20230604, end: 20230604
  59. HUMAN RED BLOOD CELL [Concomitant]
     Active Substance: HUMAN RED BLOOD CELL
     Dosage: 1,OTHER,ONCE
     Route: 042
     Dates: start: 20230612, end: 20230612
  60. HUMAN RED BLOOD CELL [Concomitant]
     Active Substance: HUMAN RED BLOOD CELL
     Dosage: 1,OTHER,ONCE
     Route: 042
     Dates: start: 20230618, end: 20230618
  61. HUMAN RED BLOOD CELL [Concomitant]
     Active Substance: HUMAN RED BLOOD CELL
     Dosage: 1,OTHER,ONCE
     Route: 042
     Dates: start: 20230617, end: 20230617
  62. HUMAN RED BLOOD CELL [Concomitant]
     Active Substance: HUMAN RED BLOOD CELL
     Dosage: 1,OTHER,ONCE
     Route: 042
     Dates: start: 20230620, end: 20230620
  63. HUMAN RED BLOOD CELL [Concomitant]
     Active Substance: HUMAN RED BLOOD CELL
     Dosage: 1,OTHER,ONCE
     Route: 042
     Dates: start: 20230621, end: 20230621
  64. HUMAN RED BLOOD CELL [Concomitant]
     Active Substance: HUMAN RED BLOOD CELL
     Dosage: 1,OTHER,ONCE
     Route: 042
     Dates: start: 20230624, end: 20230624
  65. HUMAN RED BLOOD CELL [Concomitant]
     Active Substance: HUMAN RED BLOOD CELL
     Dosage: 1,OTHER,ONCE
     Route: 042
     Dates: start: 20230625, end: 20230625
  66. HUMAN RED BLOOD CELL [Concomitant]
     Active Substance: HUMAN RED BLOOD CELL
     Dosage: 1,OTHER,ONCE
     Route: 042
     Dates: start: 20230626, end: 20230626
  67. HUMAN RED BLOOD CELL [Concomitant]
     Active Substance: HUMAN RED BLOOD CELL
     Dosage: 1,OTHER,ONCE
     Route: 042
     Dates: start: 20230629, end: 20230629
  68. HUMAN RED BLOOD CELL [Concomitant]
     Active Substance: HUMAN RED BLOOD CELL
     Dosage: 1,OTHER,ONCE
     Route: 042
     Dates: start: 20230701, end: 20230701
  69. HUMAN RED BLOOD CELL [Concomitant]
     Active Substance: HUMAN RED BLOOD CELL
     Dosage: 1,OTHER,ONCE
     Route: 042
     Dates: start: 20230702, end: 20230702
  70. HUMAN RED BLOOD CELL [Concomitant]
     Active Substance: HUMAN RED BLOOD CELL
     Dosage: 1,OTHER,ONCE
     Route: 042
     Dates: start: 20230709, end: 20230709
  71. HUMAN RED BLOOD CELL [Concomitant]
     Active Substance: HUMAN RED BLOOD CELL
     Dosage: 1,OTHER,ONCE
     Route: 042
     Dates: start: 20230710, end: 20230710
  72. HUMAN RED BLOOD CELL [Concomitant]
     Active Substance: HUMAN RED BLOOD CELL
     Dosage: 1,OTHER,ONCE
     Route: 042
     Dates: start: 20230711, end: 20230711
  73. HUMAN RED BLOOD CELL [Concomitant]
     Active Substance: HUMAN RED BLOOD CELL
     Dosage: 1,OTHER,ONCE
     Route: 042
     Dates: start: 20230715, end: 20230715
  74. HUMAN RED BLOOD CELL [Concomitant]
     Active Substance: HUMAN RED BLOOD CELL
     Dosage: 1,OTHER,ONCE
     Route: 042
     Dates: start: 20230717, end: 20230717
  75. MAGNESIUM [Concomitant]
     Active Substance: MAGNESIUM
     Dosage: 300,MG,AS NECESSARY
     Route: 048
     Dates: start: 20230511
  76. MAGNESIUM [Concomitant]
     Active Substance: MAGNESIUM
     Dosage: 300,MG,DAILY
     Route: 048
     Dates: start: 20230609, end: 20230614
  77. CALCIMAGON [CALCIUM] [Concomitant]
     Dosage: 500,MG,DAILY
     Route: 048
     Dates: start: 20230607
  78. PHOSCAP [Concomitant]
     Dosage: 3,OTHER,THREE TIMES DAILY
     Route: 048
     Dates: start: 20230609, end: 20230613
  79. DEXAMETHASONE [Concomitant]
     Active Substance: DEXAMETHASONE
     Dosage: 10,MG,FOUR TIMES DAILY
     Route: 042
     Dates: start: 20230613, end: 20230620
  80. DEXAMETHASONE [Concomitant]
     Active Substance: DEXAMETHASONE
     Dosage: 10,MG,FOUR TIMES DAILY
     Route: 042
     Dates: start: 20230613, end: 20230615
  81. DEXAMETHASONE [Concomitant]
     Active Substance: DEXAMETHASONE
     Dosage: 10,MG,THREE TIMES DAILY
     Route: 042
     Dates: start: 20230616, end: 20230617
  82. DEXAMETHASONE [Concomitant]
     Active Substance: DEXAMETHASONE
     Dosage: 10,MG,THREE TIMES DAILY
     Route: 042
     Dates: start: 20230618, end: 20230618
  83. DEXAMETHASONE [Concomitant]
     Active Substance: DEXAMETHASONE
     Dosage: 10,MG,THREE TIMES DAILY
     Route: 042
     Dates: start: 20230619, end: 20230619
  84. DEXAMETHASONE [Concomitant]
     Active Substance: DEXAMETHASONE
     Dosage: 20 MG, QD
     Route: 048
     Dates: start: 20230622, end: 20230626
  85. DEXAMETHASONE [Concomitant]
     Active Substance: DEXAMETHASONE
     Dosage: 20,MG,FOUR TIMES DAILY
     Route: 042
     Dates: start: 20230623, end: 20230627
  86. NOVORAPID [Concomitant]
     Active Substance: INSULIN ASPART
     Dosage: 100,IU,AS NECESSARY
     Route: 058
     Dates: start: 20230615
  87. ANAKINRA [Concomitant]
     Active Substance: ANAKINRA
     Dosage: 100,MG,FOUR TIMES DAILY
     Route: 058
     Dates: start: 20230617, end: 20230622
  88. ANAKINRA [Concomitant]
     Active Substance: ANAKINRA
     Dosage: 100,MG,TWICE DAILY
     Route: 058
     Dates: start: 20230617, end: 20230617
  89. ANAKINRA [Concomitant]
     Active Substance: ANAKINRA
     Dosage: 100,MG,TWICE DAILY
     Route: 058
     Dates: start: 20230618, end: 20230618
  90. ANAKINRA [Concomitant]
     Active Substance: ANAKINRA
     Dosage: 100,MG,TWICE DAILY
     Route: 058
     Dates: start: 20230619, end: 20230621
  91. ANAKINRA [Concomitant]
     Active Substance: ANAKINRA
     Dosage: 100,MG,FOUR TIMES DAILY
     Route: 058
     Dates: start: 20230622, end: 20230626
  92. ANAKINRA [Concomitant]
     Active Substance: ANAKINRA
     Dosage: 100,MG,TWICE DAILY
     Route: 058
     Dates: start: 20230627, end: 20230628
  93. VANCOMYCIN [Concomitant]
     Active Substance: VANCOMYCIN
     Dosage: 1000,MG,THREE TIMES DAILY
     Route: 042
     Dates: start: 20230618, end: 20230628
  94. VANCOMYCIN [Concomitant]
     Active Substance: VANCOMYCIN
     Dosage: 1000,MG,TWICE DAILY
     Route: 042
     Dates: start: 20230618, end: 20230619
  95. ANIDULAFUNGIN [Concomitant]
     Active Substance: ANIDULAFUNGIN
     Dosage: 100,MG,AS NECESSARY
     Route: 048
     Dates: start: 20230623, end: 20230830
  96. RIVOTRIL [Concomitant]
     Active Substance: CLONAZEPAM
     Dosage: 1.25,MG,AS NECESSARY
     Route: 048
     Dates: start: 20230623, end: 20230822
  97. RIVOTRIL [Concomitant]
     Active Substance: CLONAZEPAM
     Dosage: 2,MG,DAILY
     Route: 042
     Dates: start: 20230622, end: 20230622
  98. RIVOTRIL [Concomitant]
     Active Substance: CLONAZEPAM
     Dosage: 1,MG,CONTINUOUS
     Route: 042
     Dates: start: 20230624, end: 20230624
  99. ALDACTONE [Concomitant]
     Active Substance: SPIRONOLACTONE
     Dosage: 100,MG,AS NECESSARY
     Route: 048
     Dates: start: 20230703, end: 20230822
  100. CARVEDILOL [Concomitant]
     Active Substance: CARVEDILOL
     Dosage: 12.5,MG,AS NECESSARY
     Route: 048
     Dates: start: 20230703, end: 20230822
  101. SODIUM CHLORIDE [Concomitant]
     Active Substance: SODIUM CHLORIDE
     Dosage: 1500,ML,CONTINUOUS
     Route: 042
     Dates: start: 20230607, end: 20230618
  102. SODIUM CHLORIDE [Concomitant]
     Active Substance: SODIUM CHLORIDE
     Dosage: 1000,ML,AS NECESSARY
     Route: 042
     Dates: start: 20230530, end: 20230603
  103. RINGERS SOLUTION [Concomitant]
     Active Substance: CALCIUM CHLORIDE\POTASSIUM CHLORIDE\SODIUM CHLORIDE
     Dosage: 1500,ML,CONTINUOUS
     Route: 042
     Dates: start: 20230619
  104. METHYLPREDNISOLONE [Concomitant]
     Active Substance: METHYLPREDNISOLONE
     Dosage: 1,G,DAILY
     Route: 042
     Dates: start: 20230620, end: 20230622
  105. TAMSULOSIN [Concomitant]
     Active Substance: TAMSULOSIN
     Dosage: 0.4,MG,DAILY
     Route: 048
  106. TAMSULOSIN [Concomitant]
     Active Substance: TAMSULOSIN
     Dosage: 0.4,MG,DAILY
     Route: 048
     Dates: end: 20230621
  107. NOXAFIL [Concomitant]
     Active Substance: POSACONAZOLE
     Dosage: 300 MG, QD
     Route: 048
     Dates: start: 20230618, end: 20230819
  108. PIPERACILLIN SODIUM\TAZOBACTAM SODIUM [Concomitant]
     Active Substance: PIPERACILLIN SODIUM\TAZOBACTAM SODIUM
     Dosage: 4.5,G,THREE TIMES DAILY
     Route: 042
     Dates: start: 20230604, end: 20230604
  109. PIPERACILLIN SODIUM\TAZOBACTAM SODIUM [Concomitant]
     Active Substance: PIPERACILLIN SODIUM\TAZOBACTAM SODIUM
     Dosage: 4.5,G,THREE TIMES DAILY
     Route: 042
     Dates: start: 20230611, end: 20230612
  110. TRIMETOPRIM + SULFAMETOXAZOL [Concomitant]
     Dosage: 480,MG,OTHER
     Route: 042
     Dates: start: 20230623, end: 20230626

REACTIONS (4)
  - Haemophagocytic lymphohistiocytosis [Recovered/Resolved]
  - Tumour lysis syndrome [Recovered/Resolved with Sequelae]
  - Cytokine release syndrome [Recovered/Resolved with Sequelae]
  - Encephalopathy [Recovered/Resolved]

NARRATIVE: CASE EVENT DATE: 20230618
